FAERS Safety Report 9807114 (Version 5)
Quarter: 2014Q2

REPORT INFORMATION
  Report Type: Spontaneous
  Country: US (occurrence: US)
  Receive Date: 20140110
  Receipt Date: 20140526
  Transmission Date: 20141212
  Serious: Yes (Hospitalization)
  Sender: FDA-Public Use
  Company Number: US-BEH-2014039901

PATIENT
  Age: 49 Year
  Sex: Female
  Weight: 53 kg

DRUGS (28)
  1. HIZENTRA [Suspect]
     Indication: ASTHMA
     Dosage: 1 GM 5 ML VIAL; 2-3 SITES
     Route: 058
  2. HIZENTRA [Suspect]
     Dosage: 2 GM 10 ML VIAL; 2-3 SITES
     Route: 058
  3. HIZENTRA [Suspect]
     Dosage: 4 GM 20 ML VIAL; 2-3 SITES
     Route: 058
  4. HIZENTRA [Suspect]
     Dosage: 1 GM 5 ML VIAL
     Route: 058
  5. HIZENTRA [Suspect]
     Indication: IMMUNODEFICIENCY COMMON VARIABLE
     Dosage: 2 GM 10 ML VIAL
     Route: 058
  6. HIZENTRA [Suspect]
     Indication: RHINITIS ALLERGIC
     Dosage: 4 GM 20 ML VIAL
     Route: 058
  7. HIZENTRA [Suspect]
     Route: 058
     Dates: start: 20131212
  8. HIZENTRA [Suspect]
     Route: 058
     Dates: start: 20140401
  9. HIZENTRA [Suspect]
     Route: 058
     Dates: start: 20140401
  10. HIZENTRA [Suspect]
     Route: 058
     Dates: start: 20140401
  11. DIPHENHYDRAMINE [Concomitant]
  12. EPIPEN [Concomitant]
  13. SINGULAIR [Concomitant]
     Route: 048
  14. FLUTICASONE [Concomitant]
     Dosage: 50 MCG SPRAY
  15. TRAMADOL [Concomitant]
  16. ONDANSETRON [Concomitant]
  17. NORTRIPTYLINE [Concomitant]
  18. HYDROCHLOROTHIAZIDE [Concomitant]
  19. LISINOPRIL [Concomitant]
  20. ESTRACE [Concomitant]
     Dosage: 0.01%
  21. MIRALAX [Concomitant]
  22. L-TRYPTOPHAN [Concomitant]
     Route: 048
  23. L-GLUTAMINE [Concomitant]
  24. AZO [Concomitant]
     Route: 048
  25. PROBIOTIC ACIDOPHILUS [Concomitant]
  26. VITAMIN D [Concomitant]
  27. QVAR [Concomitant]
  28. ACETAMINOPHEN [Concomitant]
     Indication: PREMEDICATION

REACTIONS (21)
  - Nephrolithiasis [Not Recovered/Not Resolved]
  - Urinary tract infection [Not Recovered/Not Resolved]
  - Dysuria [Not Recovered/Not Resolved]
  - Fatigue [Not Recovered/Not Resolved]
  - Arthralgia [Not Recovered/Not Resolved]
  - Influenza like illness [Not Recovered/Not Resolved]
  - Infusion site pain [Not Recovered/Not Resolved]
  - Chills [Not Recovered/Not Resolved]
  - Pyrexia [Unknown]
  - Chills [Unknown]
  - Headache [Unknown]
  - Influenza like illness [Unknown]
  - Fatigue [Unknown]
  - Irritability [Unknown]
  - Disturbance in attention [Recovering/Resolving]
  - Fatigue [Recovering/Resolving]
  - Influenza like illness [Recovering/Resolving]
  - Pain [Recovering/Resolving]
  - Chills [Recovering/Resolving]
  - Headache [Recovering/Resolving]
  - Inappropriate schedule of drug administration [Unknown]
